FAERS Safety Report 6333889 (Version 4)
Quarter: 2014Q3

REPORT INFORMATION
  Report Type: Spontaneous
  Country: US (occurrence: US)
  Receive Date: 20070614
  Receipt Date: 20140922
  Transmission Date: 20150326
  Serious: Yes (Hospitalization, Other)
  Sender: FDA-Public Use
  Company Number: US-ELI_LILLY_AND_COMPANY-US_010870797

PATIENT
  Age: 12 Year
  Sex: Male

DRUGS (3)
  1. ZYPREXA [Suspect]
     Active Substance: OLANZAPINE
     Dosage: 205 MG, DAILY (1/D)
     Route: 048
  2. PAROXETINE [Concomitant]
     Active Substance: PAROXETINE\PAROXETINE HYDROCHLORIDE
     Dosage: 10 MG, EACH MORNING
  3. ADDERALL [Concomitant]
     Active Substance: AMPHETAMINE ASPARTATE\AMPHETAMINE SULFATE\DEXTROAMPHETAMINE SACCHARATE\DEXTROAMPHETAMINE SULFATE
     Dosage: 10 MG, 2/D

REACTIONS (14)
  - Toxicity to various agents [Unknown]
  - Somnolence [Recovered/Resolved]
  - Drug level increased [Recovering/Resolving]
  - Agitation [Recovered/Resolved]
  - Cognitive disorder [Recovered/Resolved]
  - Altered state of consciousness [Recovered/Resolved]
  - Intentional product misuse [Unknown]
  - Mydriasis [Unknown]
  - Miosis [Recovered/Resolved]
  - Aphasia [Recovered/Resolved]
  - Pupillary reflex impaired [Recovered/Resolved]
  - Intentional overdose [Recovered/Resolved]
  - Heart rate increased [Recovering/Resolving]
  - Lethargy [Unknown]
